FAERS Safety Report 8931417 (Version 1)
Quarter: 2012Q4

REPORT INFORMATION
  Report Type: 
  Country: US (occurrence: US)
  Receive Date: 20121128
  Receipt Date: 20121128
  Transmission Date: 20130627
  Serious: Yes (Other)
  Sender: FDA-Public Use
  Company Number: US-TARO-2011P1015749

PATIENT
  Age: 64 Year
  Sex: Male
  Weight: 71.22 kg

DRUGS (4)
  1. TRIAMCINOLONE ACETONIDE [Suspect]
     Route: 061
     Dates: start: 20111229, end: 20111230
  2. COZAAR (LOSARTAN) [Concomitant]
  3. LEVOTHYROXINE [Concomitant]
  4. VITAMINS AND MINERALS [Concomitant]

REACTIONS (2)
  - Application site swelling [Recovered/Resolved]
  - Application site irritation [Recovered/Resolved]
